FAERS Safety Report 20712485 (Version 1)
Quarter: 2022Q2

REPORT INFORMATION
  Report Type: Report from Study
  Country: US (occurrence: US)
  Receive Date: 20220415
  Receipt Date: 20220415
  Transmission Date: 20220721
  Serious: Yes (Other)
  Sender: FDA-Public Use
  Company Number: US-ABBVIE-22K-163-4358039-00

PATIENT
  Sex: Male

DRUGS (1)
  1. SKYRIZI [Suspect]
     Active Substance: RISANKIZUMAB-RZAA
     Indication: Psoriasis
     Route: 058

REACTIONS (5)
  - Medical procedure [Recovering/Resolving]
  - Ulcer [Recovering/Resolving]
  - Prostatic specific antigen increased [Unknown]
  - Haematemesis [Recovering/Resolving]
  - Haematochezia [Recovering/Resolving]
